FAERS Safety Report 11904215 (Version 2)
Quarter: 2016Q2

REPORT INFORMATION
  Report Type: Spontaneous
  Country: PL (occurrence: PL)
  Receive Date: 20160108
  Receipt Date: 20160425
  Transmission Date: 20160815
  Serious: Yes (Life-Threatening)
  Sender: FDA-Public Use
  Company Number: PL-ABBVIE-16P-129-1534137-00

PATIENT
  Age: 67 Year

DRUGS (5)
  1. VIEKIRAX [Suspect]
     Active Substance: OMBITASVIR\PARITAPREVIR\RITONAVIR
     Route: 048
     Dates: start: 20151125, end: 20160104
  2. EXVIERA [Suspect]
     Active Substance: DASABUVIR
     Route: 048
     Dates: start: 20151125, end: 20160104
  3. ENOXAPARIN [Suspect]
     Active Substance: ENOXAPARIN
     Indication: ATRIAL FIBRILLATION
     Route: 058
     Dates: start: 20151127
  4. VIEKIRAX [Suspect]
     Active Substance: OMBITASVIR\PARITAPREVIR\RITONAVIR
     Indication: HEPATITIS C
     Route: 048
     Dates: start: 20151027, end: 20151120
  5. EXVIERA [Suspect]
     Active Substance: DASABUVIR
     Indication: HEPATITIS C
     Route: 048
     Dates: start: 20151027, end: 20151120

REACTIONS (1)
  - Cerebellar haematoma [Recovered/Resolved]

NARRATIVE: CASE EVENT DATE: 20160104
